FAERS Safety Report 7311238-8 (Version None)
Quarter: 2011Q1

REPORT INFORMATION
  Report Type: 
  Country: None (occurrence: None)
  Receive Date: 20110224
  Receipt Date: 20110217
  Transmission Date: 20110831
  Serious: Yes (Death)
  Sender: FDA-Public Use
  Company Number: JP-ROCHE-761527

PATIENT
  Age: 26 Year
  Sex: Male

DRUGS (1)
  1. ANEXATE [Suspect]
     Route: 041

REACTIONS (1)
  - SHOCK [None]
